FAERS Safety Report 6033876-5 (Version None)
Quarter: 2009Q1

REPORT INFORMATION
  Report Type: 
  Country: None (occurrence: None)
  Receive Date: 20090108
  Receipt Date: 20090108
  Transmission Date: 20090719
  Serious: Yes (Other)
  Sender: FDA-Public Use
  Company Number: None

PATIENT
  Age: 60 Year
  Sex: Female

DRUGS (1)
  1. TUBERSOL [Suspect]
     Indication: TUBERCULIN TEST
     Dosage: 0.1 ML 2 DOSES 1 WEEK APAR ID
     Route: 023
     Dates: start: 20081104, end: 20081111

REACTIONS (4)
  - FEELING COLD [None]
  - INJECTION SITE DISCOLOURATION [None]
  - MUSCULAR WEAKNESS [None]
  - PARAESTHESIA [None]
